FAERS Safety Report 10412738 (Version 1)
Quarter: 2014Q3

REPORT INFORMATION
  Report Type: Spontaneous
  Country: US (occurrence: None)
  Receive Date: 20140825
  Receipt Date: 20140825
  Transmission Date: 20150326
  Serious: Yes (Death, Hospitalization)
  Sender: FDA-Public Use
  Company Number: 153539

PATIENT
  Age: 60 Year
  Sex: Male

DRUGS (1)
  1. IDARUBICIN HCL [Suspect]
     Active Substance: IDARUBICIN HYDROCHLORIDE
     Indication: ACUTE MYELOID LEUKAEMIA

REACTIONS (6)
  - Herpes virus infection [None]
  - Acute myeloid leukaemia [None]
  - Malignant neoplasm progression [None]
  - Epstein-Barr virus associated lymphoma [None]
  - Sinusitis fungal [None]
  - Skin infection [None]
